FAERS Safety Report 9100331 (Version 3)
Quarter: 2013Q1

REPORT INFORMATION
  Report Type: Spontaneous
  Country: AU (occurrence: AU)
  Receive Date: 20130215
  Receipt Date: 20130306
  Transmission Date: 20140127
  Serious: Yes (Other)
  Sender: FDA-Public Use
  Company Number: US-ASTRAZENECA-2013SE04278

PATIENT
  Age: 60 Year
  Sex: Male

DRUGS (4)
  1. SYMBICORT TURBUHALER [Suspect]
     Indication: ASTHMA
     Route: 055
     Dates: start: 20120222
  2. SYMBICORT TURBUHALER [Suspect]
     Indication: ASTHMA
     Dosage: 200/6 UG, 2 TWICE DAILY
     Route: 055
     Dates: start: 20121215, end: 20130106
  3. SYMBICORT TURBUHALER [Suspect]
     Indication: ASTHMA
     Dosage: 200/6 UG, 2 TWICE DAILY
     Route: 055
     Dates: start: 20130107
  4. SYMBICORT TURBUHALER [Suspect]
     Indication: ASTHMA
     Route: 055

REACTIONS (2)
  - Asthma [Recovered/Resolved]
  - Drug ineffective [Recovered/Resolved]
